FAERS Safety Report 9331830 (Version 1)
Quarter: 2013Q2

REPORT INFORMATION
  Report Type: Report from Study
  Country: JP (occurrence: JP)
  Receive Date: 20130605
  Receipt Date: 20130605
  Transmission Date: 20140414
  Serious: Yes (Other)
  Sender: FDA-Public Use
  Company Number: JP-009507513-2009-195636-NL

PATIENT
  Age: 34 Year
  Sex: Female
  Weight: 52.2 kg

DRUGS (6)
  1. FOLLITROPIN BETA [Suspect]
     Indication: OVULATION INDUCTION
     Dosage: 300 IU, QD
     Route: 030
     Dates: start: 20060714, end: 20060717
  2. HUMEGON [Suspect]
     Indication: OVULATION INDUCTION
     Dosage: 300 IU, QD
     Dates: start: 20060718, end: 20060719
  3. PLANOVAR [Concomitant]
     Dosage: 1 DF, QD
     Route: 048
     Dates: start: 20060621, end: 20060630
  4. HYDROXYPROGESTERONE CAPROATE [Concomitant]
     Indication: ASSISTED FERTILISATION
     Dosage: 50 MG, QD
     Dates: start: 20060726, end: 20060802
  5. MENOTROPINS [Concomitant]
     Indication: ASSISTED FERTILISATION
     Dosage: 75 IU, QD
     Dates: start: 20060721, end: 20060721
  6. GONADOTROPIN, CHORIONIC [Concomitant]
     Indication: ASSISTED FERTILISATION
     Dosage: 5000 IU, ONCE
     Dates: start: 20060722, end: 20060722

REACTIONS (2)
  - Abortion [Recovered/Resolved]
  - Ovarian hyperstimulation syndrome [Recovering/Resolving]
